FAERS Safety Report 4972917-0 (Version None)
Quarter: 2006Q2

REPORT INFORMATION
  Report Type: 
  Country: None (occurrence: None)
  Receive Date: 20060410
  Receipt Date: 20060322
  Transmission Date: 20061013
  Serious: Yes (Hospitalization)
  Sender: FDA-Public Use
  Company Number: US200603005739

PATIENT
  Age: 83 Year
  Sex: Female

DRUGS (1)
  1. HUMULIN U [Suspect]
     Indication: DIABETES MELLITUS

REACTIONS (6)
  - ARTHRITIS [None]
  - BLOOD GLUCOSE INCREASED [None]
  - CONDITION AGGRAVATED [None]
  - LARGE INTESTINAL HAEMORRHAGE [None]
  - MACULAR DEGENERATION [None]
  - PHARMACEUTICAL PRODUCT COMPLAINT [None]
